FAERS Safety Report 18581052 (Version 2)
Quarter: 2020Q4

REPORT INFORMATION
  Report Type: Spontaneous
  Country: JP (occurrence: JP)
  Receive Date: 20201204
  Receipt Date: 20201214
  Transmission Date: 20210114
  Serious: Yes (Hospitalization)
  Sender: FDA-Public Use
  Company Number: JP-ELI_LILLY_AND_COMPANY-JP202011011724AA

PATIENT
  Age: 67 Year
  Sex: Female

DRUGS (3)
  1. OLUMIANT [Suspect]
     Active Substance: BARICITINIB
     Indication: RHEUMATOID ARTHRITIS
     Dosage: 2 MG, DAILY
     Route: 048
     Dates: start: 20200929, end: 20201124
  2. EDARAVONE [Concomitant]
     Active Substance: EDARAVONE
     Indication: CEREBELLAR INFARCTION
  3. ARGATROBAN. [Concomitant]
     Active Substance: ARGATROBAN
     Indication: CEREBELLAR INFARCTION

REACTIONS (1)
  - Cerebellar infarction [Recovering/Resolving]

NARRATIVE: CASE EVENT DATE: 20201123
